FAERS Safety Report 7922560-6 (Version None)
Quarter: 2011Q4

REPORT INFORMATION
  Report Type: 
  Country: None (occurrence: None)
  Receive Date: 20111117
  Receipt Date: 20101026
  Transmission Date: 20120403
  Serious: No
  Sender: FDA-Public Use
  Company Number: US-ALLERGAN-1013756US

PATIENT
  Sex: Female

DRUGS (1)
  1. COMBIGAN [Suspect]
     Indication: INTRAOCULAR PRESSURE INCREASED
     Dosage: 1 GTT, BID
     Route: 047

REACTIONS (5)
  - EYE PRURITUS [None]
  - DRY SKIN [None]
  - EYELID EXFOLIATION [None]
  - BLEPHARITIS [None]
  - EYE IRRITATION [None]
